FAERS Safety Report 20534074 (Version 9)
Quarter: 2023Q2

REPORT INFORMATION
  Report Type: Other
  Country: CA (occurrence: None)
  Receive Date: 20220301
  Receipt Date: 20230508
  Transmission Date: 20230722
  Serious: Yes (Hospitalization, Other)
  Sender: FDA-Public Use
  Company Number: CA-ROCHE-2879265

PATIENT
  Age: 52 Year
  Sex: Female

DRUGS (11)
  1. OCREVUS [Suspect]
     Active Substance: OCRELIZUMAB
     Indication: Relapsing-remitting multiple sclerosis
     Dosage: CONCENTRATE FOR INTRAVENOUS INFUSION, 300 MG AT DAY 0 AND 14, THEN 600 MG EVERY 6 MONTH
     Route: 042
     Dates: start: 20180925
  2. GABAPENTIN [Concomitant]
     Active Substance: GABAPENTIN
     Dosage: 300MG HS AND 200MG DURING THE DAY,
  3. MAGNESIUM [Concomitant]
     Active Substance: MAGNESIUM
  4. SUMATRIPTAN [Concomitant]
     Active Substance: SUMATRIPTAN
  5. CETIRIZINE HYDROCHLORIDE [Concomitant]
     Active Substance: CETIRIZINE HYDROCHLORIDE
  6. VENLAFAXINE [Concomitant]
     Active Substance: VENLAFAXINE HYDROCHLORIDE
  7. TOPIRAMATE [Concomitant]
     Active Substance: TOPIRAMATE
  8. ADDERALL [Concomitant]
     Active Substance: AMPHETAMINE ASPARTATE\AMPHETAMINE SULFATE\DEXTROAMPHETAMINE SACCHARATE\DEXTROAMPHETAMINE SULFATE
     Dosage: 20 MG /30 MG IF HER KIDS VISITS HER SHE TAKES 30 MG
  9. ADVAIR DISKUS [Concomitant]
     Active Substance: FLUTICASONE PROPIONATE\SALMETEROL XINAFOATE
     Dosage: 500 MICROGRAM
  10. TOPAMAX [Concomitant]
     Active Substance: TOPIRAMATE
     Dosage: HS, SINCE 2 WEEKS
  11. TOPAMAX [Concomitant]
     Active Substance: TOPIRAMATE
     Dosage: HS

REACTIONS (26)
  - Visual impairment [Not Recovered/Not Resolved]
  - Diplopia [Recovered/Resolved]
  - Balance disorder [Not Recovered/Not Resolved]
  - Muscle spasms [Not Recovered/Not Resolved]
  - Electric shock sensation [Not Recovered/Not Resolved]
  - Tic [Not Recovered/Not Resolved]
  - Skin abrasion [Recovered/Resolved]
  - Hypertension [Recovered/Resolved]
  - Eye swelling [Recovering/Resolving]
  - Swelling face [Recovering/Resolving]
  - Impaired driving ability [Not Recovered/Not Resolved]
  - Neuralgia [Recovered/Resolved]
  - SARS-CoV-2 test positive [Not Recovered/Not Resolved]
  - Asthma [Not Recovered/Not Resolved]
  - Sneezing [Not Recovered/Not Resolved]
  - Fall [Unknown]
  - Trigeminal neuralgia [Recovered/Resolved]
  - Gait disturbance [Unknown]
  - Fear [Unknown]
  - Decreased appetite [Not Recovered/Not Resolved]
  - Muscular weakness [Unknown]
  - Tooth fracture [Unknown]
  - Nasal injury [Unknown]
  - Ligament sprain [Unknown]
  - Diplegia [Unknown]
  - Migraine [Not Recovered/Not Resolved]

NARRATIVE: CASE EVENT DATE: 20210726
